FAERS Safety Report 8286286-4 (Version None)
Quarter: 2012Q1

REPORT INFORMATION
  Report Type: 
  Country: None (occurrence: None)
  Receive Date: 20120314
  Receipt Date: 20100823
  Transmission Date: 20120608
  Serious: No
  Sender: FDA-Public Use
  Company Number: PHHY2010US56164

PATIENT
  Age: 29 Year
  Sex: Male
  Weight: 122.4 kg

DRUGS (2)
  1. FANAPT [Suspect]
     Dosage: 1 MG, BID 2 MG, BID 3 MG, BID
  2. SEROQUEL [Concomitant]

REACTIONS (4)
  - LETHARGY [None]
  - APATHY [None]
  - INSOMNIA [None]
  - RETROGRADE EJACULATION [None]
